FAERS Safety Report 12401353 (Version 1)
Quarter: 2016Q2

REPORT INFORMATION
  Report Type: Spontaneous
  Country: NL (occurrence: NL)
  Receive Date: 20160525
  Receipt Date: 20160525
  Transmission Date: 20160815
  Serious: Yes (Other)
  Sender: FDA-Public Use
  Company Number: NL-CORDEN PHARMA LATINA S.P.A.-NL-2016COR000159

PATIENT
  Age: 1 Year
  Sex: Female

DRUGS (5)
  1. BLEOMYCIN [Suspect]
     Active Substance: BLEOMYCIN SULFATE
     Indication: YOLK SAC TUMOUR SITE UNSPECIFIED
     Dosage: UNK
     Dates: start: 1986
  2. CISPLATIN. [Suspect]
     Active Substance: CISPLATIN
     Indication: YOLK SAC TUMOUR SITE UNSPECIFIED
     Dosage: UNK
     Dates: start: 1986
  3. IFOSFAMIDE. [Suspect]
     Active Substance: IFOSFAMIDE
     Indication: YOLK SAC TUMOUR SITE UNSPECIFIED
     Dosage: UNK
     Dates: start: 1986
  4. ETOPOSIDE. [Suspect]
     Active Substance: ETOPOSIDE
     Indication: YOLK SAC TUMOUR SITE UNSPECIFIED
     Dosage: UNK
     Dates: start: 1986
  5. VINBLASTINE [Suspect]
     Active Substance: VINBLASTINE
     Indication: YOLK SAC TUMOUR SITE UNSPECIFIED
     Dosage: UNK
     Dates: start: 1986

REACTIONS (2)
  - Deafness [Unknown]
  - Renal failure [Unknown]
